FAERS Safety Report 20341048 (Version 1)
Quarter: 2022Q1

REPORT INFORMATION
  Report Type: Spontaneous
  Country: US (occurrence: US)
  Receive Date: 20220117
  Receipt Date: 20220117
  Transmission Date: 20220423
  Serious: No
  Sender: FDA-Public Use
  Company Number: US-SA-SAC20220113000440

PATIENT
  Age: 47 Year
  Sex: Male

DRUGS (1)
  1. DUPIXENT [Suspect]
     Active Substance: DUPILUMAB
     Indication: Asthma
     Dosage: 300 MG/2ML, QOW
     Route: 058
     Dates: start: 20200123

REACTIONS (8)
  - Pyrexia [Unknown]
  - Fatigue [Unknown]
  - Influenza like illness [Unknown]
  - Cough [Unknown]
  - COVID-19 [Unknown]
  - Malaise [Unknown]
  - Product dose omission issue [Unknown]
  - Incorrect dose administered [Unknown]

NARRATIVE: CASE EVENT DATE: 20200123
